FAERS Safety Report 12806267 (Version 2)
Quarter: 2016Q4

REPORT INFORMATION
  Report Type: Spontaneous
  Country: HR (occurrence: HR)
  Receive Date: 20161004
  Receipt Date: 20161012
  Transmission Date: 20170207
  Serious: Yes (Other)
  Sender: FDA-Public Use
  Company Number: HR-INCYTE CORPORATION-2016IN006240

PATIENT
  Sex: Male

DRUGS (10)
  1. LITALIR [Concomitant]
     Active Substance: HYDROXYUREA
     Dosage: 0.5 AND 1 G ALTERNATELY, QD
  2. MEDROL [Concomitant]
     Active Substance: METHYLPREDNISOLONE
     Indication: PRODUCT USED FOR UNKNOWN INDICATION
     Dosage: 8 MG, UNK
     Route: 065
  3. LITALIR [Concomitant]
     Active Substance: HYDROXYUREA
     Dosage: 1 DF, UNK
     Route: 065
  4. JAKAVI [Suspect]
     Active Substance: RUXOLITINIB
     Dosage: 20 MG, QD
     Route: 065
     Dates: start: 201603
  5. LITALIR [Concomitant]
     Active Substance: HYDROXYUREA
     Indication: PRODUCT USED FOR UNKNOWN INDICATION
     Dosage: 1 G, QD
     Route: 065
  6. LITALIR [Concomitant]
     Active Substance: HYDROXYUREA
     Dosage: 1 DF, UNK
     Route: 065
  7. JAKAVI [Suspect]
     Active Substance: RUXOLITINIB
     Dosage: 20 MG, BID
     Route: 065
  8. IFN ALPHA [Concomitant]
     Indication: PRODUCT USED FOR UNKNOWN INDICATION
     Dosage: 3.0 MIU, QD
     Route: 065
  9. JAKAVI [Suspect]
     Active Substance: RUXOLITINIB
     Indication: POLYCYTHAEMIA VERA
     Dosage: 20 MG, BID
     Route: 065
     Dates: start: 20120920
  10. LITALIR [Concomitant]
     Active Substance: HYDROXYUREA
     Dosage: 0.5 AND 1 G ALTERNATELY, QD
     Route: 065

REACTIONS (12)
  - Cardiac failure [Unknown]
  - Dyspnoea [Recovered/Resolved]
  - Feeling abnormal [Unknown]
  - Diarrhoea [Unknown]
  - Pulmonary hypertension [Unknown]
  - Atrial fibrillation [Unknown]
  - Withdrawal syndrome [Unknown]
  - Weight decreased [Recovered/Resolved]
  - Congestive cardiomyopathy [Unknown]
  - Concomitant disease progression [Unknown]
  - Tricuspid valve incompetence [Unknown]
  - Asthenia [Recovered/Resolved]

NARRATIVE: CASE EVENT DATE: 201603
